FAERS Safety Report 13577260 (Version 1)
Quarter: 2017Q2

REPORT INFORMATION
  Report Type: Spontaneous
  Country: IN (occurrence: IN)
  Receive Date: 20170524
  Receipt Date: 20170524
  Transmission Date: 20170830
  Serious: Yes (Death, Hospitalization, Other)
  Sender: FDA-Public Use
  Company Number: IN-MYLANLABS-2017M1031182

PATIENT

DRUGS (1)
  1. ALLOPURINOL. [Suspect]
     Active Substance: ALLOPURINOL
     Indication: GOUT
     Dosage: 300 MG PER DAY
     Route: 065

REACTIONS (4)
  - Acute kidney injury [Unknown]
  - Septic shock [Fatal]
  - Pneumonia [Unknown]
  - Toxic epidermal necrolysis [Fatal]
